FAERS Safety Report 7506519-9 (Version None)
Quarter: 2011Q2

REPORT INFORMATION
  Report Type: 
  Country: None (occurrence: None)
  Receive Date: 20110526
  Receipt Date: 20110520
  Transmission Date: 20111010
  Serious: Yes (Other)
  Sender: FDA-Public Use
  Company Number: BR-PFIZER INC-2011109169

PATIENT
  Age: 85 Year
  Sex: Female
  Weight: 160 kg

DRUGS (6)
  1. MOTILIUM [Concomitant]
     Indication: GASTRIC DISORDER
     Dosage: UNK
  2. NIMODIPINE [Concomitant]
     Indication: CARDIOVASCULAR INSUFFICIENCY
     Dosage: UNK
  3. ATENOLOL [Concomitant]
     Indication: BLOOD PRESSURE
     Dosage: 25 UNITS UNSPECIFIED; AT NIGHT
  4. LYRICA [Suspect]
     Indication: PAIN
     Dosage: 75 MG, 1X/DAY
     Route: 048
     Dates: start: 20110518, end: 20110519
  5. LOSARTAN POTASSIUM [Concomitant]
     Indication: BLOOD PRESSURE
     Dosage: 50 (UNKNOW STRENGHT); IN THE MORNING
  6. PANTOPRAZOLE [Concomitant]
     Indication: GASTRIC DISORDER
     Dosage: 40 MG, 1X/DAY

REACTIONS (12)
  - SYNCOPE [None]
  - CONFUSIONAL STATE [None]
  - PAIN [None]
  - COLD SWEAT [None]
  - GAIT DISTURBANCE [None]
  - HALLUCINATION, VISUAL [None]
  - HALLUCINATION, AUDITORY [None]
  - DIZZINESS [None]
  - FALL [None]
  - FEELING COLD [None]
  - SOMNOLENCE [None]
  - TREMOR [None]
